FAERS Safety Report 4947923-2 (Version None)
Quarter: 2006Q1

REPORT INFORMATION
  Report Type: 
  Country: None (occurrence: None)
  Receive Date: 20060314
  Receipt Date: 20060302
  Transmission Date: 20060701
  Serious: Yes (Death)
  Sender: FDA-Public Use
  Company Number: 2006BH004511

PATIENT
  Age: 76 Year
  Sex: Male
  Weight: 39.4 kg

DRUGS (9)
  1. EXTRANEAL [Suspect]
     Indication: RENAL FAILURE CHRONIC
     Dosage: 1500 ML; EVERY DAY; IP
     Dates: start: 20040712
  2. DIANEAL [Concomitant]
  3. DIGOXIN [Concomitant]
  4. ARTIST [Concomitant]
  5. GASTER [Concomitant]
  6. BEPRICOR [Concomitant]
  7. PURSENNID [Concomitant]
  8. EPOGIN [Concomitant]
  9. LASIX [Concomitant]

REACTIONS (5)
  - BLOOD LACTATE DEHYDROGENASE INCREASED [None]
  - HAEMOPTYSIS [None]
  - INTERSTITIAL LUNG DISEASE [None]
  - PNEUMONIA BACTERIAL [None]
  - THERAPY NON-RESPONDER [None]
